FAERS Safety Report 13765394 (Version 2)
Quarter: 2017Q3

REPORT INFORMATION
  Report Type: Spontaneous
  Country: JP (occurrence: JP)
  Receive Date: 20170718
  Receipt Date: 20170814
  Transmission Date: 20171127
  Serious: Yes (Other)
  Sender: FDA-Public Use
  Company Number: JP-ALLERGAN-1729834US

PATIENT
  Age: 55 Year
  Sex: Male

DRUGS (4)
  1. LINACLOTIDE - BP [Suspect]
     Active Substance: LINACLOTIDE
     Indication: PRODUCT USED FOR UNKNOWN INDICATION
     Dosage: 0.5 MG, 1 IN 1 D
     Route: 048
     Dates: start: 20170516, end: 2017
  2. LINACLOTIDE - BP [Suspect]
     Active Substance: LINACLOTIDE
     Dosage: 0.25 MG, 1 IN 1 D
     Route: 048
     Dates: start: 2017, end: 2017
  3. LINZESS [Suspect]
     Active Substance: LINACLOTIDE
     Dosage: 0.25 MG, 1 IN 1 D
     Route: 048
     Dates: start: 2017, end: 2017
  4. LINZESS [Suspect]
     Active Substance: LINACLOTIDE
     Indication: PRODUCT USED FOR UNKNOWN INDICATION
     Dosage: 0.5 MG, 1 IN 1 D
     Route: 048
     Dates: start: 20170516, end: 2017

REACTIONS (2)
  - Shunt occlusion [Recovered/Resolved]
  - Diarrhoea [Recovered/Resolved]

NARRATIVE: CASE EVENT DATE: 2017
